FAERS Safety Report 7653997-0 (Version None)
Quarter: 2011Q3

REPORT INFORMATION
  Report Type: 
  Country: None (occurrence: None)
  Receive Date: 20110803
  Receipt Date: 20110721
  Transmission Date: 20111222
  Serious: Yes (Other)
  Sender: FDA-Public Use
  Company Number: PHHY2011AR65942

PATIENT
  Sex: Female

DRUGS (1)
  1. ZOLEDRONOC ACID [Suspect]
     Indication: OSTEOPENIA

REACTIONS (5)
  - SYNCOPE [None]
  - TOOTH FRACTURE [None]
  - BLOOD PRESSURE DECREASED [None]
  - OPEN WOUND [None]
  - FALL [None]
